FAERS Safety Report 18441451 (Version 1)
Quarter: 2020Q4

REPORT INFORMATION
  Report Type: Spontaneous
  Country: KR (occurrence: KR)
  Receive Date: 20201029
  Receipt Date: 20201029
  Transmission Date: 20210114
  Serious: Yes (Hospitalization, Other)
  Sender: FDA-Public Use
  Company Number: KR-RISING PHARMA HOLDINGS, INC.-2020RIS000252

PATIENT
  Age: 87 Year
  Sex: Male

DRUGS (2)
  1. DONEPEZIL HYDROCHLORIDE. [Suspect]
     Active Substance: DONEPEZIL HYDROCHLORIDE
     Indication: DEMENTIA ALZHEIMER^S TYPE
     Dosage: 5 MILLIGRAM
     Route: 065
  2. CHOLINE ALFOSCERATE [Concomitant]
     Active Substance: CHOLINE ALFOSCERATE
     Indication: DEMENTIA ALZHEIMER^S TYPE
     Dosage: 400 MILLIGRAM, BID
     Route: 065

REACTIONS (1)
  - Hypokalaemia [Recovered/Resolved]
